FAERS Safety Report 11044733 (Version 1)
Quarter: 2015Q2

REPORT INFORMATION
  Report Type: Report from Study
  Country: US (occurrence: US)
  Receive Date: 20150417
  Receipt Date: 20150417
  Transmission Date: 20150821
  Serious: No
  Sender: FDA-Public Use
  Company Number: US-ABBVIE-14P-163-1226963-00

PATIENT
  Age: 67 Year
  Sex: Male
  Weight: 83.99 kg

DRUGS (2)
  1. ANDROGEL [Suspect]
     Active Substance: TESTOSTERONE
     Indication: PRODUCT USED FOR UNKNOWN INDICATION
     Dosage: 2 PUMPS
     Route: 061
     Dates: start: 201402
  2. LISINOPRIL. [Concomitant]
     Active Substance: LISINOPRIL
     Indication: HYPERTENSION

REACTIONS (4)
  - Dry skin [Recovering/Resolving]
  - Acne [Recovering/Resolving]
  - Application site rash [Not Recovered/Not Resolved]
  - Dandruff [Recovering/Resolving]

NARRATIVE: CASE EVENT DATE: 201402
